FAERS Safety Report 6013863-3 (Version None)
Quarter: 2008Q4

REPORT INFORMATION
  Report Type: 
  Country: None (occurrence: None)
  Receive Date: 20081216
  Receipt Date: 20071128
  Transmission Date: 20090506
  Serious: Yes (Life-Threatening, Hospitalization)
  Sender: FDA-Public Use
  Company Number: US-WYE-H01466007

PATIENT
  Sex: Female

DRUGS (2)
  1. EFFEXOR XR [Suspect]
     Dosage: 75 MG CAPSULES (OVERDOSE AMOUNT WAS 60 PILLS) 4500 MG, ORAL
     Route: 048
  2. VISTARIL [Concomitant]

REACTIONS (3)
  - INTENTIONAL OVERDOSE [None]
  - LOSS OF CONSCIOUSNESS [None]
  - SUICIDE ATTEMPT [None]
